FAERS Safety Report 21368315 (Version 1)
Quarter: 2022Q3

REPORT INFORMATION
  Report Type: Spontaneous
  Country: BR (occurrence: BR)
  Receive Date: 20220923
  Receipt Date: 20220923
  Transmission Date: 20221027
  Serious: Yes (Other)
  Sender: FDA-Public Use
  Company Number: BR-009507513-2209BRA006120

PATIENT
  Age: 65 Year
  Sex: Female

DRUGS (2)
  1. SIMVASTATIN [Suspect]
     Active Substance: SIMVASTATIN
     Dosage: UNK
     Route: 048
  2. ROSUVASTATIN [Suspect]
     Active Substance: ROSUVASTATIN
     Dosage: 10 MILLIGRAM

REACTIONS (5)
  - Neoplasm malignant [Unknown]
  - Drug ineffective [Unknown]
  - Blood cholesterol increased [Recovered/Resolved]
  - Ill-defined disorder [Unknown]
  - Fear [Unknown]

NARRATIVE: CASE EVENT DATE: 20000101
